FAERS Safety Report 24697291 (Version 1)
Quarter: 2024Q4

REPORT INFORMATION
  Report Type: Report from Study
  Country: CA (occurrence: CA)
  Receive Date: 20241204
  Receipt Date: 20241204
  Transmission Date: 20250115
  Serious: Yes (Other)
  Sender: OTSUKA
  Company Number: CA-OTSUKA-2024_032314

PATIENT
  Age: 52 Year
  Sex: Female

DRUGS (1)
  1. TOLVAPTAN [Suspect]
     Active Substance: TOLVAPTAN
     Indication: Congenital cystic kidney disease
     Dosage: 90 MG
     Route: 048
     Dates: start: 20190829

REACTIONS (2)
  - Liver transplant [Unknown]
  - Renal transplant [Unknown]

NARRATIVE: CASE EVENT DATE: 20240803
